FAERS Safety Report 8560751-4 (Version None)
Quarter: 2012Q3

REPORT INFORMATION
  Report Type: 
  Country: None (occurrence: None)
  Receive Date: 20120802
  Receipt Date: 20120724
  Transmission Date: 20120928
  Serious: Yes (Hospitalization, Other)
  Sender: FDA-Public Use
  Company Number: NZ-JNJFOC-20120713736

PATIENT
  Age: 6 Decade
  Sex: Female

DRUGS (2)
  1. UNKNOWN MEDICATION [Concomitant]
     Indication: PREMEDICATION
     Route: 065
  2. REMICADE [Suspect]
     Indication: COLITIS ULCERATIVE
     Route: 042

REACTIONS (3)
  - SKIN REACTION [None]
  - COLITIS ULCERATIVE [None]
  - INFUSION RELATED REACTION [None]
